APPROVED DRUG PRODUCT: VERAPAMIL HYDROCHLORIDE
Active Ingredient: VERAPAMIL HYDROCHLORIDE
Strength: 120MG
Dosage Form/Route: TABLET, EXTENDED RELEASE;ORAL
Application: A206173 | Product #003 | TE Code: AB
Applicant: CADILA PHARMACEUTICALS LTD
Approved: Nov 14, 2022 | RLD: No | RS: No | Type: RX